FAERS Safety Report 10404110 (Version 2)
Quarter: 2014Q1

REPORT INFORMATION
  Report Type: Spontaneous
  Country: US (occurrence: None)
  Receive Date: 20130906
  Receipt Date: 20130906
  Transmission Date: 20141002
  Serious: Yes (Other)
  Sender: FDA-Public Use
  Company Number: 163-POMAL-13044423

PATIENT
  Sex: Male
  Weight: 72.12 kg

DRUGS (22)
  1. POMALYST (POMALIDOMIDE) (2 MILLIGRAM, CAPSULES) [Suspect]
     Indication: PLASMA CELL MYELOMA
     Dosage: 2 MG, 21 IN 21 D, PO
     Route: 048
     Dates: start: 20130312
  2. ALLOPURINOL (ALLOPURINOL) [Concomitant]
  3. AMITRIPTYLINE (AMITRIPTYLINE) [Concomitant]
  4. CYMBALTA (DULOXETINE HYDROCHLORIDE) [Concomitant]
  5. DEXAMETHASONE (DEXAMETHASONE) [Concomitant]
  6. DIFLUCAN (FLUCONAZOLE) [Concomitant]
  7. FENTANYL DISC (FENTANYL) [Concomitant]
  8. KYTRIL (GRANISETRON) [Concomitant]
  9. LAMICTAL (LAMOTRIGINE) [Concomitant]
  10. ZYPREXA (OLANZAPINE) [Concomitant]
  11. LEVAQUIN (LEVOFLOXACIN) [Concomitant]
  12. LOMOTIL (LOMOTIL) [Concomitant]
  13. VALTREX (VALACICLOVIR HYDROCHLORIDE) [Concomitant]
  14. MARINOL (DRONABINOL) [Concomitant]
  15. NYSTATIN (NYSTATIN) [Concomitant]
  16. THORAZINE (CHLORPROMAZINE HYDROCHLORIDE) [Concomitant]
  17. OXYCODONE (OXYCODONE) [Concomitant]
  18. PHENERGAN [Concomitant]
  19. PROCHLORPERAZINE (PROCHLORPERAZINE) [Concomitant]
  20. PROTONIX [Concomitant]
  21. ROBINUL (GLYCOPYRRONIUM BROMIDE) [Concomitant]
  22. SEROQUIL (QUETIAPINE FUMARATE) [Concomitant]

REACTIONS (2)
  - Platelet count decreased [None]
  - Nausea [None]
